FAERS Safety Report 8911132 (Version 6)
Quarter: 2013Q1

REPORT INFORMATION
  Report Type: Report from Study
  Country: US (occurrence: US)
  Receive Date: 20121115
  Receipt Date: 20130111
  Transmission Date: 20140127
  Serious: Yes (Hospitalization)
  Sender: FDA-Public Use
  Company Number: US-JNJFOC-20121105090

PATIENT
  Age: 17 Year
  Sex: Female
  Weight: 42.4 kg

DRUGS (8)
  1. REMICADE [Suspect]
     Indication: CROHN^S DISEASE
     Route: 042
     Dates: start: 20041224
  2. DILAUDID [Concomitant]
  3. IMODIUM A-D [Concomitant]
  4. TOTAL PARENTERAL NUTRITION [Concomitant]
  5. AMITRIPTYLINE [Concomitant]
  6. LEVATOL [Concomitant]
  7. LYRICA [Concomitant]
  8. FENTANYL [Concomitant]

REACTIONS (2)
  - Urinary tract infection [Recovered/Resolved]
  - Klebsiella test positive [None]
